FAERS Safety Report 6394280-3 (Version None)
Quarter: 2009Q4

REPORT INFORMATION
  Report Type: 
  Country: None (occurrence: None)
  Receive Date: 20091006
  Receipt Date: 20090921
  Transmission Date: 20100525
  Serious: Yes (Other)
  Sender: FDA-Public Use
  Company Number: 230004M09ZAF

PATIENT
  Age: 38 Year
  Sex: Female
  Weight: 63 kg

DRUGS (6)
  1. REBIF [Suspect]
     Indication: RELAPSING-REMITTING MULTIPLE SCLEROSIS
     Dosage: 44 MCG, SUBCUTANEOUS
     Route: 058
     Dates: start: 20090501, end: 20090801
  2. STILLNOX (ZOLPIDEM /00914901/) [Concomitant]
  3. BRUFIN [BRUFEN] (IBUPROFEN) [Concomitant]
  4. PARACETAMOL (PARACETAMOL) [Concomitant]
  5. STEROIDS (CORTICOSTEROIDS) [Concomitant]
  6. NSAIDS (ANTIINFLAMMATORY/ ANTIRHEUMATIC NON-STEROIDS) [Concomitant]

REACTIONS (9)
  - CHROMATURIA [None]
  - FATIGUE [None]
  - HEADACHE [None]
  - HEPATIC ENZYME INCREASED [None]
  - HEPATIC NECROSIS [None]
  - HEPATIC STEATOSIS [None]
  - HEPATOTOXICITY [None]
  - INSOMNIA [None]
  - LIVER INJURY [None]
